FAERS Safety Report 8623922-4 (Version None)
Quarter: 2012Q3

REPORT INFORMATION
  Report Type: 
  Country: None (occurrence: None)
  Receive Date: 20120827
  Receipt Date: 20120821
  Transmission Date: 20120928
  Serious: Yes (Other)
  Sender: FDA-Public Use
  Company Number: PHHY2012BR056449

PATIENT
  Sex: Male

DRUGS (2)
  1. DORFLEX [Concomitant]
     Indication: HEADACHE
  2. GILENYA [Suspect]
     Indication: MULTIPLE SCLEROSIS
     Dosage: 1 DF, PER DAY
     Route: 048
     Dates: start: 20120622

REACTIONS (7)
  - DYSENTERY [None]
  - HEAD DISCOMFORT [None]
  - VERTIGO [None]
  - ABDOMINAL PAIN UPPER [None]
  - FLATULENCE [None]
  - PRURITUS [None]
  - HEADACHE [None]
